FAERS Safety Report 20161487 (Version 15)
Quarter: 2025Q4

REPORT INFORMATION
  Report Type: Report from Study
  Country: US (occurrence: US)
  Receive Date: 20211208
  Receipt Date: 20251218
  Transmission Date: 20260118
  Serious: Yes (Hospitalization, Other)
  Sender: PFIZER
  Company Number: US-PFIZER INC-202101298325

PATIENT
  Age: 74 Year
  Sex: Female
  Weight: 78.93 kg

DRUGS (3)
  1. IBRANCE [Suspect]
     Active Substance: PALBOCICLIB
     Indication: Breast cancer female
     Dosage: 100 MG
     Dates: end: 202307
  2. IBRANCE [Suspect]
     Active Substance: PALBOCICLIB
     Dosage: 75 MG, CYCLIC (75 MG, DAILY FOR 3 WEEKS, THEN 1 WEEK OFF)
     Route: 048
  3. IBRANCE [Suspect]
     Active Substance: PALBOCICLIB
     Dosage: 75 MG, CYCLIC (75 MG, FOR 21 DAYS THEN REST FOR 8 DAYS/EVERY TAKE 21 DAYS, THEN OFF 8)
     Route: 048

REACTIONS (8)
  - Compression fracture [Unknown]
  - Back injury [Unknown]
  - Cataract [Unknown]
  - Rash [Recovered/Resolved]
  - Herpes zoster [Recovered/Resolved]
  - Rash pruritic [Recovered/Resolved]
  - Off label use [Unknown]
  - Product prescribing issue [Unknown]

NARRATIVE: CASE EVENT DATE: 20241101
